FAERS Safety Report 7888435-6 (Version None)
Quarter: 2011Q4

REPORT INFORMATION
  Report Type: 
  Country: None (occurrence: None)
  Receive Date: 20111103
  Receipt Date: 20111025
  Transmission Date: 20120403
  Serious: Yes (Hospitalization, Other)
  Sender: FDA-Public Use
  Company Number: PHEH2011US04866

PATIENT
  Sex: Male

DRUGS (9)
  1. VITAMIN B-12 [Concomitant]
  2. GLUCOSAMINE W/CHONDROITIN [Concomitant]
  3. RED BLOOD CELLS [Concomitant]
  4. ASPIRIN [Concomitant]
  5. CALCIUM W/MAGNESIUM/ZINC [Concomitant]
  6. COD-LIVER OIL [Concomitant]
  7. EXJADE [Suspect]
     Dosage: 500 MG PER DAY
     Route: 048
  8. EXJADE [Suspect]
     Indication: CHRONIC MYELOID LEUKAEMIA
     Dosage: 1500 MG, QD
     Route: 048
     Dates: start: 20110320
  9. CALCIUM CITRATE W/VITAMIN D NOS [Concomitant]

REACTIONS (7)
  - RETINAL VEIN OCCLUSION [None]
  - PYREXIA [None]
  - PNEUMONIA BACTERIAL [None]
  - SEPSIS [None]
  - DIARRHOEA [None]
  - INTRAOCULAR PRESSURE FLUCTUATION [None]
  - EYE HAEMORRHAGE [None]
